FAERS Safety Report 10713217 (Version 1)
Quarter: 2015Q1

REPORT INFORMATION
  Report Type: Spontaneous
  Country: US (occurrence: None)
  Receive Date: 20150114
  Receipt Date: 20150114
  Transmission Date: 20150721
  Serious: Yes (Life-Threatening, Hospitalization)
  Sender: FDA-Public Use
  Company Number: None

PATIENT
  Age: 70 Year
  Sex: Male
  Weight: 95.26 kg

DRUGS (1)
  1. XARELTO [Suspect]
     Active Substance: RIVAROXABAN
     Indication: ATRIAL FIBRILLATION
     Dosage: 20, ONCE DAILY
     Route: 048

REACTIONS (6)
  - Product quality issue [None]
  - Rib fracture [None]
  - Haematoma [None]
  - Internal haemorrhage [None]
  - Pain [None]
  - Fall [None]

NARRATIVE: CASE EVENT DATE: 20141025
